FAERS Safety Report 19355198 (Version 5)
Quarter: 2021Q3

REPORT INFORMATION
  Report Type: Spontaneous
  Country: US (occurrence: US)
  Receive Date: 20210602
  Receipt Date: 20210823
  Transmission Date: 20211014
  Serious: Yes (Hospitalization, Other)
  Sender: FDA-Public Use
  Company Number: US-STRONGBRIDGE BIOPHARMA-2021-STR-000188

PATIENT
  Age: 35 Year
  Sex: Female

DRUGS (1)
  1. KEVEYIS [Suspect]
     Active Substance: DICHLORPHENAMIDE
     Indication: PRODUCT USED FOR UNKNOWN INDICATION
     Dosage: UNK

REACTIONS (8)
  - Gastric disorder [Unknown]
  - Gastrointestinal disorder [Unknown]
  - Malaise [Unknown]
  - Vomiting [Unknown]
  - Apathy [Unknown]
  - Illness [Unknown]
  - Ulcer [Unknown]
  - Surgery [Unknown]

NARRATIVE: CASE EVENT DATE: 20210803
